FAERS Safety Report 5516845-0 (Version None)
Quarter: 2007Q4

REPORT INFORMATION
  Report Type: 
  Country: None (occurrence: None)
  Receive Date: 20071109
  Receipt Date: 20071025
  Transmission Date: 20080405
  Serious: Yes (Death, Congenital Anomaly)
  Sender: FDA-Public Use
  Company Number: 2007S1011050

PATIENT
  Age: 27 Year
  Sex: Female

DRUGS (1)
  1. TAMOXIFEN CITRATE [Suspect]
     Indication: BREAST CANCER
     Dosage: 20 MG; TRANSPLACENTAL
     Route: 064
     Dates: end: 20060801

REACTIONS (1)
  - CONGENITAL ANOMALY [None]
